FAERS Safety Report 14976911 (Version 1)
Quarter: 2018Q2

REPORT INFORMATION
  Report Type: Spontaneous
  Country: DE (occurrence: DE)
  Receive Date: 20180605
  Receipt Date: 20180605
  Transmission Date: 20180711
  Serious: Yes (Hospitalization)
  Sender: FDA-Public Use
  Company Number: DE-TEVA-2018-DE-901942

PATIENT
  Age: 81 Year
  Sex: Male
  Weight: 82 kg

DRUGS (8)
  1. SIMVASTATIN. [Concomitant]
     Active Substance: SIMVASTATIN
     Dosage: 40 MILLIGRAM DAILY; 40 MG / TAG, 0-0-1-0
     Route: 048
  2. LOSARTAN. [Suspect]
     Active Substance: LOSARTAN
     Dosage: 1-0-1-0
     Route: 048
  3. THIAMIN (VITAMIN B1) [Concomitant]
     Dosage: 1-0-1-0
     Route: 048
  4. DABIGATRAN [Suspect]
     Active Substance: DABIGATRAN
     Dosage: 1-0-1-0
     Route: 048
  5. PANTOPRAZOL [Concomitant]
     Active Substance: PANTOPRAZOLE SODIUM
     Dosage: 40 MILLIGRAM DAILY; 40 MG / TAG, 1-0-0-0
     Route: 048
  6. NORVASC [Suspect]
     Active Substance: AMLODIPINE BESYLATE
     Dosage: 1-0-1-0
     Route: 048
  7. BISOPROLOL [Suspect]
     Active Substance: BISOPROLOL
     Dosage: 1-0-1-0
     Route: 048
  8. KALIUMHYDROXID [Concomitant]
     Dosage: 1 DOSAGE FORMS DAILY; 1-0-0-0
     Route: 048

REACTIONS (3)
  - Mucosal haemorrhage [Unknown]
  - Fall [Unknown]
  - Respiratory tract haemorrhage [Unknown]
